FAERS Safety Report 4299133-2 (Version None)
Quarter: 2004Q1

REPORT INFORMATION
  Report Type: 
  Country: None (occurrence: None)
  Receive Date: 20040217
  Receipt Date: 20040119
  Transmission Date: 20041129
  Serious: Yes (Other)
  Sender: FDA-Public Use
  Company Number: 2004-112500-NL

PATIENT
  Age: 29 Year
  Sex: Female
  Weight: 56.8 kg

DRUGS (1)
  1. NUVARING [Suspect]
     Indication: CONTRACEPTION
     Dosage: VAGINAL, 1 RING / 3 WEEKS; REMOVAL 1 WEEK
     Route: 067
     Dates: start: 20020801, end: 20040118

REACTIONS (7)
  - ANXIETY [None]
  - CERVIX CARCINOMA [None]
  - INSOMNIA [None]
  - PANIC ATTACK [None]
  - PAPILLOMA VIRAL INFECTION [None]
  - PARAESTHESIA [None]
  - TREATMENT NONCOMPLIANCE [None]
